FAERS Safety Report 8310474-1 (Version None)
Quarter: 2012Q2

REPORT INFORMATION
  Report Type: 
  Country: None (occurrence: None)
  Receive Date: 20120425
  Receipt Date: 20120411
  Transmission Date: 20120825
  Serious: Yes (Hospitalization)
  Sender: FDA-Public Use
  Company Number: US-ROCHE-1058808

PATIENT
  Age: 60 Year
  Sex: Female
  Weight: 130.9 kg

DRUGS (6)
  1. HERCEPTIN [Suspect]
     Dosage: OVER 90 MIN WEEK 1, THEN 2 MG/KG OVER 30 MIN FOR REMAINING 11 WEEKS
     Route: 042
     Dates: start: 20111011
  2. FLUOROURACIL [Suspect]
     Indication: BREAST CANCER
     Dosage: ROUTE IVP, ON DAY ONE
  3. HERCEPTIN [Suspect]
     Indication: BREAST CANCER
     Dosage: OVER 60 MIN, CYCLE= 3 WEEKS, LAST DOSE PRIOR TO SAE 13 MAR 2012
     Route: 042
  4. EPIRUBICIN HYDROCHLORIDE [Suspect]
     Indication: BREAST CANCER
     Dosage: OVER 15 MIN ON DAY 1
     Route: 042
  5. PACLITAXEL [Suspect]
     Indication: BREAST CANCER
     Dosage: OVER 60 MIN WEEKLY, LAST DOSE PRIOR TO SAE 13 MAR 2012
     Route: 042
  6. CYCLOPHOSPHAMIDE [Suspect]
     Indication: BREAST CANCER
     Dosage: OVER 30 MIN ON DAY 1
     Route: 042

REACTIONS (1)
  - EMBOLISM [None]
